FAERS Safety Report 7033533-2 (Version None)
Quarter: 2010Q4

REPORT INFORMATION
  Report Type: 
  Country: None (occurrence: None)
  Receive Date: 20101007
  Receipt Date: 20100923
  Transmission Date: 20110411
  Serious: Yes (Other)
  Sender: FDA-Public Use
  Company Number: PHEH2006US15162

PATIENT
  Sex: Female

DRUGS (20)
  1. AREDIA [Suspect]
     Dosage: 90 MG, QMO
     Route: 042
     Dates: end: 20020101
  2. ZOMETA [Suspect]
     Dosage: UNK
     Dates: end: 20050901
  3. KYTRIL [Concomitant]
  4. COUMADIN [Concomitant]
  5. PREVACID [Concomitant]
  6. TYLENOL [Concomitant]
  7. FIORICET [Concomitant]
     Indication: MIGRAINE
  8. FASLODEX [Concomitant]
  9. VALIUM [Concomitant]
  10. DURAGESIC-100 [Concomitant]
  11. ANZEMET [Concomitant]
  12. LOMOTIL [Concomitant]
  13. LASIX [Concomitant]
  14. ALDACTONE [Concomitant]
  15. FENTANYL [Concomitant]
  16. CECLOR [Concomitant]
     Dosage: 200 X 21
  17. DARVOCET-N 100 [Concomitant]
     Dosage: 100 X 15
  18. ULTRAM [Concomitant]
     Dosage: 50 MG, 1 TAB, Q 4-6 H
  19. PROPULSID [Concomitant]
  20. PERIDEX [Suspect]

REACTIONS (44)
  - AMMONIA INCREASED [None]
  - ANEURYSM [None]
  - ARTHRALGIA [None]
  - ASCITES [None]
  - BACK PAIN [None]
  - BLOOD CALCIUM DECREASED [None]
  - BLOOD CALCIUM INCREASED [None]
  - BLOOD CREATININE INCREASED [None]
  - BLOOD POTASSIUM DECREASED [None]
  - BLOOD UREA DECREASED [None]
  - BLOOD UREA INCREASED [None]
  - BONE DISORDER [None]
  - CAROTID ARTERY STENOSIS [None]
  - CONSTIPATION [None]
  - DENTAL CARIES [None]
  - DIARRHOEA [None]
  - EMPHYSEMA [None]
  - FAECALOMA [None]
  - HAEMATOCRIT DECREASED [None]
  - HAEMOGLOBIN DECREASED [None]
  - HEPATIC CIRRHOSIS [None]
  - HEPATIC ENCEPHALOPATHY [None]
  - HEPATOSPLENOMEGALY [None]
  - HYDRONEPHROSIS [None]
  - JAW DISORDER [None]
  - LEUKOCYTOSIS [None]
  - LIVER FUNCTION TEST ABNORMAL [None]
  - MENTAL STATUS CHANGES [None]
  - METASTASES TO LIVER [None]
  - MUCOSAL INFLAMMATION [None]
  - MUCOSAL ULCERATION [None]
  - NECROSIS [None]
  - ORAL DISORDER [None]
  - OSTEONECROSIS OF JAW [None]
  - PAIN IN JAW [None]
  - PARACENTESIS [None]
  - PHARYNGEAL MASS [None]
  - PLATELET COUNT DECREASED [None]
  - PROTEIN TOTAL DECREASED [None]
  - PURULENT DISCHARGE [None]
  - RED BLOOD CELL COUNT DECREASED [None]
  - SENSORY DISTURBANCE [None]
  - SERUM FERRITIN INCREASED [None]
  - UTERINE LEIOMYOMA [None]
